FAERS Safety Report 25899740 (Version 1)
Quarter: 2025Q4

REPORT INFORMATION
  Report Type: Spontaneous
  Country: US (occurrence: US)
  Receive Date: 20251009
  Receipt Date: 20251009
  Transmission Date: 20260118
  Serious: Yes (Hospitalization)
  Sender: ROCHE
  Company Number: US-ROCHE-10000402688

PATIENT
  Age: 66 Year
  Sex: Male

DRUGS (8)
  1. GAZYVA [Suspect]
     Active Substance: OBINUTUZUMAB
     Indication: Chronic lymphocytic leukaemia
     Route: 042
     Dates: start: 20250910, end: 20251001
  2. ALLOPURINOL [Concomitant]
     Active Substance: ALLOPURINOL
     Route: 048
  3. ALLOPURINOL [Concomitant]
     Active Substance: ALLOPURINOL
     Route: 048
     Dates: start: 20250909
  4. DAPAGLIFLOZIN [Concomitant]
     Active Substance: DAPAGLIFLOZIN
     Indication: Diabetes mellitus
     Route: 048
     Dates: start: 20250911
  5. DEXLANSOPRAZOLE [Concomitant]
     Active Substance: DEXLANSOPRAZOLE
     Indication: Gastrooesophageal reflux disease
     Route: 048
     Dates: start: 202508
  6. GABAPENTIN [Concomitant]
     Active Substance: GABAPENTIN
     Route: 048
  7. LORAZEPAM [Concomitant]
     Active Substance: LORAZEPAM
     Indication: Anxiety
     Route: 048
     Dates: start: 20250916
  8. PREDNISONE [Concomitant]
     Active Substance: PREDNISONE
     Dosage: PREVENTION OF POTENTIAL REACTION
     Route: 048
     Dates: start: 20250916

REACTIONS (6)
  - Hot flush [Unknown]
  - Loss of consciousness [Unknown]
  - Incontinence [Unknown]
  - Pulse abnormal [Unknown]
  - Pulse absent [Recovered/Resolved]
  - Bradycardia [Unknown]

NARRATIVE: CASE EVENT DATE: 20251001
